FAERS Safety Report 6161436-4 (Version None)
Quarter: 2009Q2

REPORT INFORMATION
  Report Type: 
  Country: None (occurrence: None)
  Receive Date: 20090417
  Receipt Date: 20090417
  Transmission Date: 20091009
  Serious: Yes (Other)
  Sender: FDA-Public Use
  Company Number: None

PATIENT
  Sex: Female
  Weight: 81.6475 kg

DRUGS (2)
  1. LISINOPRIL [Suspect]
     Indication: HYPERTENSION
     Dosage: 1 TABLET BY MOUTH 2 X DAILY
     Route: 048
     Dates: start: 20090326
  2. LISINOPRIL [Suspect]
     Indication: HYPERTENSION
     Dosage: 1 TABLET BY MOUTH 2 X DAILY
     Route: 048
     Dates: start: 20090327

REACTIONS (3)
  - ASTHMA [None]
  - NASOPHARYNGITIS [None]
  - SEASONAL ALLERGY [None]
